FAERS Safety Report 25923990 (Version 2)
Quarter: 2025Q4

REPORT INFORMATION
  Report Type: Spontaneous
  Country: EU (occurrence: EU)
  Receive Date: 20251015
  Receipt Date: 20251028
  Transmission Date: 20260117
  Serious: Yes (Life-Threatening)
  Sender: MYLAN
  Company Number: EU-MYLANLABS-2025M1087349

PATIENT
  Sex: Female

DRUGS (8)
  1. LYRICA [Suspect]
     Active Substance: PREGABALIN
     Indication: Back pain
     Dosage: UNK, TID (TAKEN THREE TIMES A DAY)
  2. LYRICA [Suspect]
     Active Substance: PREGABALIN
     Dosage: UNK, TID (TAKEN THREE TIMES A DAY)
     Route: 048
  3. LYRICA [Suspect]
     Active Substance: PREGABALIN
     Dosage: UNK, TID (TAKEN THREE TIMES A DAY)
     Route: 048
  4. LYRICA [Suspect]
     Active Substance: PREGABALIN
     Dosage: UNK, TID (TAKEN THREE TIMES A DAY)
  5. IBUPROFEN ARGININE [Concomitant]
     Active Substance: IBUPROFEN ARGININE
     Indication: Back pain
     Dosage: UNK
  6. IBUPROFEN ARGININE [Concomitant]
     Active Substance: IBUPROFEN ARGININE
     Dosage: UNK
     Route: 065
  7. IBUPROFEN ARGININE [Concomitant]
     Active Substance: IBUPROFEN ARGININE
     Dosage: UNK
     Route: 065
  8. IBUPROFEN ARGININE [Concomitant]
     Active Substance: IBUPROFEN ARGININE
     Dosage: UNK

REACTIONS (2)
  - Dysphagia [Unknown]
  - Product prescribing issue [Unknown]
